FAERS Safety Report 7475541-3 (Version None)
Quarter: 2011Q2

REPORT INFORMATION
  Report Type: 
  Country: None (occurrence: None)
  Receive Date: 20110512
  Receipt Date: 20110510
  Transmission Date: 20111010
  Serious: Yes (Death, Hospitalization)
  Sender: FDA-Public Use
  Company Number: PHHY2011AR39500

PATIENT
  Sex: Male

DRUGS (1)
  1. EXFORGE [Suspect]
     Indication: HYPERTENSION
     Dosage: 1 DF, 160/5 MG
     Dates: start: 20080101

REACTIONS (3)
  - RENAL FAILURE [None]
  - DIABETES MELLITUS [None]
  - CARDIAC FAILURE CONGESTIVE [None]
